FAERS Safety Report 5221042-2 (Version None)
Quarter: 2007Q1

REPORT INFORMATION
  Report Type: 
  Country: None (occurrence: None)
  Receive Date: 20070126
  Receipt Date: 20070115
  Transmission Date: 20070707
  Serious: Yes (Hospitalization)
  Sender: FDA-Public Use
  Company Number: PHFR2007GB00552

PATIENT
  Age: 51 Year
  Sex: Female

DRUGS (3)
  1. GLEEVEC [Suspect]
     Indication: CHRONIC MYELOID LEUKAEMIA
     Dosage: 400 MG/DAY
     Route: 048
     Dates: start: 20001011, end: 20061018
  2. ALLOPURINOL SODIUM [Concomitant]
     Indication: CHRONIC MYELOID LEUKAEMIA
     Dosage: 300 MG/DAY
     Route: 048
     Dates: start: 20061011
  3. FRUSEMIDE [Concomitant]
     Indication: FLUID RETENTION
     Dosage: 40 MG/DAY
     Route: 048

REACTIONS (10)
  - BLOOD PRESSURE DECREASED [None]
  - BRADYCARDIA [None]
  - CHEST PAIN [None]
  - GRAND MAL CONVULSION [None]
  - LOSS OF CONSCIOUSNESS [None]
  - PERICARDIAL EFFUSION [None]
  - PERICARDITIS [None]
  - PHARYNGOLARYNGEAL PAIN [None]
  - SYNCOPE [None]
  - SYNCOPE VASOVAGAL [None]
